FAERS Safety Report 15561027 (Version 1)
Quarter: 2018Q4

REPORT INFORMATION
  Report Type: Spontaneous
  Country: US (occurrence: US)
  Receive Date: 20181029
  Receipt Date: 20181029
  Transmission Date: 20190205
  Serious: No
  Sender: FDA-Public Use
  Company Number: None

PATIENT
  Age: 28 Year
  Sex: Female
  Weight: 81 kg

DRUGS (1)
  1. APLISOL [Suspect]
     Active Substance: TUBERCULIN PURIFIED PROTEIN DERIVATIVE
     Indication: MYCOBACTERIUM TUBERCULOSIS COMPLEX TEST
     Dates: start: 20181024, end: 20181024

REACTIONS (4)
  - Impaired work ability [None]
  - Feeling abnormal [None]
  - Insomnia [None]
  - Pruritus generalised [None]

NARRATIVE: CASE EVENT DATE: 20181024
